FAERS Safety Report 16154226 (Version 1)
Quarter: 2019Q2

REPORT INFORMATION
  Report Type: Spontaneous
  Country: US (occurrence: US)
  Receive Date: 20190403
  Receipt Date: 20190403
  Transmission Date: 20190711
  Serious: Yes (Other)
  Sender: FDA-Public Use
  Company Number: US-DRREDDYS-USA/USA/19/0109157

PATIENT
  Age: 46 Year
  Sex: Male

DRUGS (3)
  1. DECITABINE. [Suspect]
     Active Substance: DECITABINE
  2. DECITABINE. [Suspect]
     Active Substance: DECITABINE
     Indication: MYELOFIBROSIS
     Dosage: ADMINISTERED OVER 5 DAYS
  3. RUXOLITINIB [Suspect]
     Active Substance: RUXOLITINIB
     Indication: MYELOFIBROSIS

REACTIONS (3)
  - Acute febrile neutrophilic dermatosis [Recovering/Resolving]
  - Condition aggravated [Recovering/Resolving]
  - Febrile neutropenia [Recovering/Resolving]
